FAERS Safety Report 19808940 (Version 1)
Quarter: 2021Q3

REPORT INFORMATION
  Report Type: Spontaneous
  Country: US (occurrence: US)
  Receive Date: 20210909
  Receipt Date: 20210909
  Transmission Date: 20211014
  Serious: Yes (Life-Threatening)
  Sender: FDA-Public Use
  Company Number: None

PATIENT
  Age: 32 Year
  Sex: Male
  Weight: 161.2 kg

DRUGS (16)
  1. AMLODIPINE [Concomitant]
     Active Substance: AMLODIPINE BESYLATE
     Dates: start: 20210903
  2. VANCOMYCIN [Concomitant]
     Active Substance: VANCOMYCIN
     Dates: start: 20210901, end: 20210902
  3. LABETALOL INFUSION [Concomitant]
     Dates: start: 20210901, end: 20210901
  4. CEFTRIAXONE. [Concomitant]
     Active Substance: CEFTRIAXONE
     Dates: start: 20210901, end: 20210905
  5. HEPARIN [Concomitant]
     Active Substance: HEPARIN SODIUM
     Dates: start: 20210901, end: 20210902
  6. ENOXAPARIN [Concomitant]
     Active Substance: ENOXAPARIN
     Dates: start: 20210902
  7. LEVETIRACETAM. [Concomitant]
     Active Substance: LEVETIRACETAM
     Dates: start: 20210831
  8. INSULIN (REGULAR ??} GLARGINE AND LISPRO) [Concomitant]
     Dates: start: 20210831
  9. BARICITINIB. [Suspect]
     Active Substance: BARICITINIB
     Indication: COVID-19
     Route: 048
     Dates: start: 20210901, end: 20210906
  10. DEXAMETHASONE. [Concomitant]
     Active Substance: DEXAMETHASONE
     Dates: start: 20210831
  11. METOPROLOL SUCCINATE. [Concomitant]
     Active Substance: METOPROLOL SUCCINATE
     Dates: start: 20210831
  12. DILTIAZEM. [Concomitant]
     Active Substance: DILTIAZEM
     Dates: start: 20210904, end: 20210906
  13. NICARDIPINE INFUSION [Concomitant]
     Dates: start: 20210901, end: 20210901
  14. ENOXAPARIN [Concomitant]
     Active Substance: ENOXAPARIN
     Dates: start: 20210831, end: 20210901
  15. FAMOTIDINE. [Concomitant]
     Active Substance: FAMOTIDINE
     Dates: start: 20210831
  16. REMDESIVIR. [Concomitant]
     Active Substance: REMDESIVIR
     Dates: start: 20210831

REACTIONS (4)
  - Deep vein thrombosis [None]
  - Hypoxia [None]
  - Pulmonary embolism [None]
  - Supraventricular tachycardia [None]

NARRATIVE: CASE EVENT DATE: 20210905
